FAERS Safety Report 17505535 (Version 2)
Quarter: 2020Q2

REPORT INFORMATION
  Report Type: Spontaneous
  Country: US (occurrence: US)
  Receive Date: 20200306
  Receipt Date: 20200408
  Transmission Date: 20200713
  Serious: No
  Sender: FDA-Public Use
  Company Number: US-JNJFOC-20200241054

PATIENT
  Age: 32 Year
  Sex: Female
  Weight: 59.02 kg

DRUGS (1)
  1. WOMENS ROGAINE UNSCENTED [Suspect]
     Active Substance: MINOXIDIL
     Indication: ALOPECIA
     Dosage: MORE THAN A CAPFUL
     Route: 061
     Dates: start: 201909

REACTIONS (3)
  - Alopecia [Recovered/Resolved]
  - Product physical consistency issue [Unknown]
  - Overdose [Unknown]

NARRATIVE: CASE EVENT DATE: 201909
